FAERS Safety Report 6911579-X (Version None)
Quarter: 2010Q3

REPORT INFORMATION
  Report Type: 
  Country: None (occurrence: None)
  Receive Date: 20100806
  Receipt Date: 20100727
  Transmission Date: 20110219
  Serious: Yes (Other)
  Sender: FDA-Public Use
  Company Number: US-BAYER-201029587NA

PATIENT
  Sex: Female

DRUGS (1)
  1. YAZ [Suspect]
     Indication: PRODUCT USED FOR UNKNOWN INDICATION
     Dates: start: 20071008

REACTIONS (4)
  - ABDOMINAL PAIN UPPER [None]
  - BILIARY COLIC [None]
  - CHOLECYSTITIS CHRONIC [None]
  - CHOLELITHIASIS [None]
